FAERS Safety Report 8890937 (Version 1)
Quarter: 2012Q4

REPORT INFORMATION
  Report Type: 
  Country: FR (occurrence: FR)
  Receive Date: 20121107
  Receipt Date: 20121107
  Transmission Date: 20130627
  Serious: Yes (Hospitalization)
  Sender: FDA-Public Use
  Company Number: FR-MERCK-1211FRA002853

PATIENT
  Age: 62 Year
  Sex: Male

DRUGS (10)
  1. JANUMET [Suspect]
     Indication: TYPE 2 DIABETES MELLITUS
     Dosage: 1 DF, bid
     Route: 048
     Dates: start: 20120619
  2. DOLIPRANE [Suspect]
     Indication: PYREXIA
     Dosage: UNK
     Route: 048
     Dates: start: 20121017
  3. LANTUS [Concomitant]
  4. GLIBENCLAMID [Concomitant]
  5. ACEBUTOLOL [Concomitant]
     Dosage: 350 mg, UNK
  6. IRBESARTAN [Concomitant]
     Dosage: 300 mg, qd
  7. KARDEGIC [Concomitant]
     Dosage: 100 mg, UNK
  8. PRAVASTATIN SODIUM [Concomitant]
     Dosage: 10 mg, UNK
  9. STRESAM [Concomitant]
     Dosage: 2 UNK, UNK
  10. METFORMIN [Concomitant]
     Dosage: 1000 mg, UNK

REACTIONS (1)
  - Drug-induced liver injury [Unknown]
